FAERS Safety Report 15256534 (Version 1)
Quarter: 2018Q3

REPORT INFORMATION
  Report Type: Spontaneous
  Country: US (occurrence: US)
  Receive Date: 20180808
  Receipt Date: 20180808
  Transmission Date: 20181010
  Serious: No
  Sender: FDA-Public Use
  Company Number: US-ASTRAZENECA-2018SE99966

PATIENT
  Sex: Female

DRUGS (2)
  1. BYDUREON [Concomitant]
     Active Substance: EXENATIDE
  2. BYDUREON BCISE [Suspect]
     Active Substance: EXENATIDE
     Dosage: 2 INJECTIONS
     Route: 065

REACTIONS (4)
  - Injection site pain [Unknown]
  - Therapeutic response unexpected [Unknown]
  - Injection site haemorrhage [Unknown]
  - Injection site bruising [Unknown]
